FAERS Safety Report 9937897 (Version 1)
Quarter: 2014Q1

REPORT INFORMATION
  Report Type: Spontaneous
  Country: US (occurrence: US)
  Receive Date: 20140303
  Receipt Date: 20140303
  Transmission Date: 20141002
  Serious: No
  Sender: FDA-Public Use
  Company Number: US-BIOGENIDEC-2014BI016828

PATIENT
  Age: 49 Year
  Sex: Female

DRUGS (4)
  1. TECFIDERA [Suspect]
     Indication: MULTIPLE SCLEROSIS
     Route: 048
  2. ACETAMINOPHEN EXTRA STRENGTH [Concomitant]
  3. ADDERALL [Concomitant]
  4. CLARITIN [Concomitant]

REACTIONS (1)
  - Nasopharyngitis [Unknown]
